FAERS Safety Report 16962776 (Version 2)
Quarter: 2020Q1

REPORT INFORMATION
  Report Type: Spontaneous
  Country: US (occurrence: US)
  Receive Date: 20191025
  Receipt Date: 20200203
  Transmission Date: 20200409
  Serious: Yes (Other)
  Sender: FDA-Public Use
  Company Number: NVSC2019US015367

PATIENT

DRUGS (6)
  1. BLESELUMAB [Suspect]
     Active Substance: BLESELUMAB
     Indication: IMMUNOSUPPRESSANT DRUG THERAPY
     Dosage: 200 MG, QMO
     Route: 065
  2. MYCOPHENOLATE MOFETIL. [Suspect]
     Active Substance: MYCOPHENOLATE MOFETIL
     Indication: RENAL TRANSPLANT
     Dosage: 1 G, BID
     Route: 065
  3. BASILIXIMAB [Suspect]
     Active Substance: BASILIXIMAB
     Indication: RENAL TRANSPLANT
     Dosage: 20 MG (ONE PRIOR TO TRANSPLANTATION OR INTRAOPERATIVELY AND SECOND AFTER ON DAYS 3-5 POSTTRANSPLANT)
     Route: 040
  4. MYCOPHENOLATE MOFETIL. [Suspect]
     Active Substance: MYCOPHENOLATE MOFETIL
     Indication: IMMUNOSUPPRESSANT DRUG THERAPY
  5. BASILIXIMAB [Suspect]
     Active Substance: BASILIXIMAB
     Indication: IMMUNOSUPPRESSANT DRUG THERAPY
  6. BLESELUMAB [Suspect]
     Active Substance: BLESELUMAB
     Indication: RENAL TRANSPLANT
     Dosage: 200 MG (DAY 0,7, 14, 28, 42, 56, 70 AND 90 TO THE DAY OF TRANSPLANTATION)
     Route: 065

REACTIONS (1)
  - Transplant rejection [Unknown]
